FAERS Safety Report 8596817-2 (Version None)
Quarter: 2012Q3

REPORT INFORMATION
  Report Type: 
  Country: None (occurrence: None)
  Receive Date: 20120815
  Receipt Date: 20120801
  Transmission Date: 20120928
  Serious: Yes (Other)
  Sender: FDA-Public Use
  Company Number: GB-WATSON-2012-14214

PATIENT
  Age: 39 Year
  Sex: Male
  Weight: 80.6 kg

DRUGS (2)
  1. SIMVASTATIN [Suspect]
     Indication: LIPIDS
     Dosage: 40 MG, UNKNOWN INTERVAL
     Route: 048
     Dates: start: 20120602, end: 20120622
  2. CITALOPRAM HYDROBROMIDE [Suspect]
     Indication: PRODUCT USED FOR UNKNOWN INDICATION
     Dosage: UNK
     Route: 065

REACTIONS (2)
  - FEELING ABNORMAL [None]
  - DRUG INTERACTION [None]
